FAERS Safety Report 24050123 (Version 1)
Quarter: 2024Q3

REPORT INFORMATION
  Report Type: Spontaneous
  Country: JP (occurrence: JP)
  Receive Date: 20240704
  Receipt Date: 20240704
  Transmission Date: 20241016
  Serious: Yes (Other)
  Sender: Steriscience PTE
  Company Number: JP-STERISCIENCE B.V.-2024-ST-000943

PATIENT
  Age: 84 Year
  Sex: Male

DRUGS (1)
  1. AMPICILLIN [Suspect]
     Active Substance: AMPICILLIN
     Indication: Enterococcal infection
     Dosage: UNK
     Route: 065

REACTIONS (1)
  - Encephalopathy [None]
